FAERS Safety Report 5583841-7 (Version None)
Quarter: 2008Q1

REPORT INFORMATION
  Report Type: 
  Country: None (occurrence: None)
  Receive Date: 20080102
  Receipt Date: 20080102
  Transmission Date: 20080703
  Serious: Yes (Hospitalization)
  Sender: FDA-Public Use
  Company Number: None

PATIENT
  Sex: Male
  Weight: 58 kg

DRUGS (1)
  1. OLANZAPINE [Suspect]
     Indication: SELF INJURIOUS BEHAVIOUR
     Dosage: 30MG DAILY PO
     Route: 048
     Dates: start: 20070817, end: 20071019

REACTIONS (6)
  - BODY TEMPERATURE INCREASED [None]
  - DROOLING [None]
  - LETHARGY [None]
  - MUSCLE CONTRACTIONS INVOLUNTARY [None]
  - TREMOR [None]
  - VOMITING [None]
